FAERS Safety Report 12304828 (Version 1)
Quarter: 2016Q2

REPORT INFORMATION
  Report Type: Report from Study
  Country: US (occurrence: US)
  Receive Date: 20160426
  Receipt Date: 20160426
  Transmission Date: 20160815
  Serious: Yes (Death)
  Sender: FDA-Public Use
  Company Number: US-ROCHE-1535473

PATIENT
  Age: 57 Year
  Sex: Male

DRUGS (8)
  1. LEXAPRO [Concomitant]
     Active Substance: ESCITALOPRAM OXALATE
     Route: 048
     Dates: end: 20150113
  2. RANIBIZUMAB [Suspect]
     Active Substance: RANIBIZUMAB
     Dosage: 0.6MG/0.1ML PRN
     Route: 065
     Dates: start: 20141113, end: 20141113
  3. METFORMIN [Concomitant]
     Active Substance: METFORMIN HYDROCHLORIDE
     Indication: DIABETES MELLITUS
     Route: 048
     Dates: end: 20150113
  4. LISINOPRIL. [Concomitant]
     Active Substance: LISINOPRIL
     Indication: HYPERTENSION
     Route: 048
     Dates: end: 20150113
  5. NOVOLIN INSULIN [Concomitant]
     Indication: DIABETES MELLITUS
     Route: 058
  6. RANIBIZUMAB [Suspect]
     Active Substance: RANIBIZUMAB
     Indication: DIABETIC RETINAL OEDEMA
     Dosage: LEFT EYE
     Route: 050
     Dates: start: 20130609, end: 20141113
  7. BUTALBITAL W ACETAMINOPHEN [Concomitant]
     Indication: HEADACHE
     Dosage: 1-2 PRN
     Route: 048
     Dates: end: 20150113
  8. NOVOLIN INSULIN [Concomitant]
     Route: 058
     Dates: end: 20150113

REACTIONS (1)
  - Death [Fatal]

NARRATIVE: CASE EVENT DATE: 20150113
